FAERS Safety Report 8910941 (Version 2)
Quarter: 2012Q4

REPORT INFORMATION
  Report Type: Report from Study
  Country: US (occurrence: US)
  Receive Date: 20121115
  Receipt Date: 20121123
  Transmission Date: 20130627
  Serious: Yes (Hospitalization)
  Sender: FDA-Public Use
  Company Number: US-ABBOTT-12P-163-1005794-00

PATIENT
  Sex: Female
  Weight: 99.88 kg

DRUGS (16)
  1. TRICOR [Suspect]
     Indication: BLOOD CHOLESTEROL INCREASED
     Dates: end: 2012
  2. CARAFATE [Concomitant]
     Indication: GASTROOESOPHAGEAL REFLUX DISEASE
  3. MIRALAX [Concomitant]
     Indication: CONSTIPATION
  4. BENICAR [Concomitant]
     Indication: HYPERTENSION
  5. HYDROCHLOROTH [Concomitant]
     Indication: HYPERTENSION
  6. SAVELLA [Concomitant]
     Indication: FIBROMYALGIA
  7. METFORMIN [Concomitant]
     Indication: DIABETES MELLITUS
  8. FOLIC ACID [Concomitant]
     Indication: STOMATITIS
  9. METHOTREXATE [Concomitant]
     Indication: RHEUMATOID ARTHRITIS
  10. CITRACAL [Concomitant]
     Indication: SUPPLEMENTATION THERAPY
  11. VITAMIN D [Concomitant]
     Indication: VITAMIN SUPPLEMENTATION
  12. PLAQUENIL [Concomitant]
     Indication: RHEUMATOID ARTHRITIS
  13. SYNTHROID [Concomitant]
     Indication: HYPOTHYROIDISM
  14. RANITIDINE [Concomitant]
     Indication: GASTROOESOPHAGEAL REFLUX DISEASE
  15. METROGEL [Concomitant]
     Indication: ROSACEA
  16. CLINDAMYCIN PHOSPHATE [Concomitant]
     Indication: ACNE
     Route: 061

REACTIONS (4)
  - Chest pain [Recovered/Resolved]
  - Dyspnoea [Recovered/Resolved]
  - Myalgia [Recovered/Resolved]
  - Headache [Recovered/Resolved]
